FAERS Safety Report 23973449 (Version 1)
Quarter: 2024Q2

REPORT INFORMATION
  Report Type: Spontaneous
  Country: US (occurrence: None)
  Receive Date: 20240613
  Receipt Date: 20240613
  Transmission Date: 20240715
  Serious: No
  Sender: FDA-Public Use
  Company Number: US-MDD US Operations-MDD202311-004438

PATIENT
  Age: 63 Year
  Sex: Female
  Weight: 47 kg

DRUGS (4)
  1. APOKYN [Suspect]
     Active Substance: APOMORPHINE HYDROCHLORIDE
     Indication: Parkinson^s disease
     Dosage: 0.1 ML
     Dates: start: 20231113
  2. APOKYN [Suspect]
     Active Substance: APOMORPHINE HYDROCHLORIDE
     Dosage: INJECT 0.1ML UNDER THE SKIN AS STARTER DOSE AND TITRATE TO EFFECTIVE DOSE (MAX DOSE OF 0.6ML)
     Route: 058
     Dates: start: 202310
  3. GOCOVRI [Concomitant]
     Active Substance: AMANTADINE
     Indication: Parkinson^s disease
     Dosage: NOT PROVIDED
  4. RYTARY [Concomitant]
     Active Substance: CARBIDOPA\LEVODOPA
     Indication: Parkinson^s disease
     Dosage: NOT PROVIDED

REACTIONS (4)
  - Feeling hot [Recovered/Resolved]
  - Feeling cold [Recovered/Resolved]
  - Somnolence [Recovered/Resolved]
  - Headache [Unknown]

NARRATIVE: CASE EVENT DATE: 20231113
